FAERS Safety Report 15163543 (Version 2)
Quarter: 2018Q3

REPORT INFORMATION
  Report Type: Spontaneous
  Country: US (occurrence: US)
  Receive Date: 20180719
  Receipt Date: 20180819
  Transmission Date: 20181010
  Serious: Yes (Other)
  Sender: FDA-Public Use
  Company Number: US-BEH-2018092782

PATIENT
  Sex: Male
  Weight: 82.86 kg

DRUGS (12)
  1. NAPROXEN. [Concomitant]
     Active Substance: NAPROXEN
  2. ZYRTEC [Concomitant]
     Active Substance: CETIRIZINE HYDROCHLORIDE
  3. DIPHENHYDRAMINE. [Concomitant]
     Active Substance: DIPHENHYDRAMINE
  4. PREDNISONE. [Concomitant]
     Active Substance: PREDNISONE
  5. TRAMADOL. [Concomitant]
     Active Substance: TRAMADOL
  6. CENTRUM SILVER                     /02363801/ [Concomitant]
     Active Substance: MINERALS\VITAMINS
  7. GENTAMYCIN                         /00047101/ [Concomitant]
     Active Substance: GENTAMICIN
  8. ACETAMINOPHEN. [Concomitant]
     Active Substance: ACETAMINOPHEN
  9. SODIUM CHLORIDE. [Concomitant]
     Active Substance: SODIUM CHLORIDE
  10. PRIVIGEN [Suspect]
     Active Substance: HUMAN IMMUNOGLOBULIN G
     Dosage: UNK
     Route: 042
  11. EPINEPHRINE. [Concomitant]
     Active Substance: EPINEPHRINE
  12. PRIVIGEN [Suspect]
     Active Substance: HUMAN IMMUNOGLOBULIN G
     Indication: IMMUNODEFICIENCY COMMON VARIABLE
     Dosage: 40 G, UNK
     Route: 042
     Dates: start: 20160407

REACTIONS (2)
  - Skin infection [Unknown]
  - Radiation skin injury [Unknown]
